FAERS Safety Report 9843428 (Version 1)
Quarter: 2013Q4

REPORT INFORMATION
  Report Type: Spontaneous
  Country: US (occurrence: None)
  Receive Date: 20131219
  Receipt Date: 20131219
  Transmission Date: 20140711
  Serious: Yes (Other)
  Sender: FDA-Public Use
  Company Number: 163-20785-13074830

PATIENT
  Age: 51 Year
  Sex: Female
  Weight: 96.62 kg

DRUGS (1)
  1. THALOMID (THALIDOMIDE) (CAPSULES) [Suspect]
     Indication: PLASMA CELL MYELOMA
     Dosage: 1 IN 1 D
     Route: 048
     Dates: start: 20130719, end: 20130719

REACTIONS (5)
  - Swelling face [None]
  - Erythema [None]
  - Dizziness [None]
  - Somnolence [None]
  - Paraesthesia [None]
